FAERS Safety Report 9823589 (Version 4)
Quarter: 2014Q1

REPORT INFORMATION
  Report Type: Report from Study
  Country: BR (occurrence: BR)
  Receive Date: 20140116
  Receipt Date: 20140322
  Transmission Date: 20141002
  Serious: Yes (Death, Hospitalization, Other)
  Sender: FDA-Public Use
  Company Number: PHHY2014BR003200

PATIENT
  Age: 74 Year
  Sex: Female
  Weight: 48 kg

DRUGS (6)
  1. EXELON PATCH [Suspect]
     Indication: PARKINSON^S DISEASE
     Dosage: 4.6 MG, DAILY(5CM2 BASE)
     Route: 062
     Dates: start: 201312
  2. EXELON PATCH [Suspect]
     Indication: DEMENTIA ALZHEIMER^S TYPE
  3. ZIDER [Concomitant]
     Indication: ANXIETY
     Dosage: 10 MG, UNK (DURING HOSPITALIZATION)
  4. OLANZAPINE [Concomitant]
     Indication: NEUROLOGICAL EXAMINATION NORMAL
     Dosage: 5 MG, UNK (DURING HOSPITALIZATION)
  5. TRILEPTAL [Concomitant]
     Indication: CONVULSION
     Dosage: 300 MG, UNK (DURING HOSPITALIZATION)
  6. OXCARBAZEPINE [Concomitant]
     Indication: CONVULSION
     Dosage: UNK UKN, UNK (DURING HOSPITALIZATION)

REACTIONS (9)
  - Death [Fatal]
  - Pneumonia [Unknown]
  - Lung disorder [Unknown]
  - Aspiration bronchial [Unknown]
  - Convulsion [Unknown]
  - Tongue disorder [Recovering/Resolving]
  - Dysphagia [Recovering/Resolving]
  - Aphasia [Recovering/Resolving]
  - Weight decreased [Recovering/Resolving]
